FAERS Safety Report 7825217-5 (Version None)
Quarter: 2011Q4

REPORT INFORMATION
  Report Type: 
  Country: None (occurrence: None)
  Receive Date: 20111019
  Receipt Date: 20111014
  Transmission Date: 20120403
  Serious: Yes (Other)
  Sender: FDA-Public Use
  Company Number: IT-GLAXOSMITHKLINE-B0755312A

PATIENT
  Age: 55 Year
  Sex: Female

DRUGS (2)
  1. ALLI [Suspect]
     Indication: PRODUCT USED FOR UNKNOWN INDICATION
     Dosage: 3TAB PER DAY
     Route: 065
     Dates: start: 20110926, end: 20110929
  2. CONCOR [Concomitant]
     Indication: HYPERTENSION

REACTIONS (5)
  - VISUAL ACUITY REDUCED [None]
  - PAIN [None]
  - BACK PAIN [None]
  - TACHYCARDIA [None]
  - EYE PAIN [None]
